FAERS Safety Report 9067779 (Version 1)
Quarter: 2013Q1

REPORT INFORMATION
  Report Type: Spontaneous
  Country: ES (occurrence: ES)
  Receive Date: 20130128
  Receipt Date: 20130128
  Transmission Date: 20140127
  Serious: Yes (Hospitalization, Other)
  Sender: FDA-Public Use
  Company Number: ES-WATSON-2013-00804

PATIENT
  Age: 65 Year
  Sex: Female

DRUGS (1)
  1. CYCLOSPORINE (WATSON LABORATORIES) [Suspect]
     Indication: LIVER TRANSPLANT
     Dosage: 15 MG/KG/DAY, REDUCED  TO 10 MG/KG/DAY, THEN 2.5 MG/KG/DAY
     Route: 048

REACTIONS (4)
  - Leukoencephalopathy [Recovered/Resolved]
  - Blindness cortical [Recovered/Resolved]
  - Convulsion [Recovered/Resolved]
  - Hallucination, visual [Recovered/Resolved]
